FAERS Safety Report 4476342-0 (Version None)
Quarter: 2004Q4

REPORT INFORMATION
  Report Type: 
  Country: None (occurrence: None)
  Receive Date: 20041016
  Receipt Date: 20041008
  Transmission Date: 20050328
  Serious: Yes (Hospitalization)
  Sender: FDA-Public Use
  Company Number: BR-MERCK-0410BRA00308

PATIENT
  Age: 70 Year
  Sex: Female

DRUGS (1)
  1. VIOXX [Suspect]
     Indication: CATARACT
     Route: 048
     Dates: start: 20011001, end: 20011001

REACTIONS (2)
  - ARRHYTHMIA [None]
  - CHEST PAIN [None]
